FAERS Safety Report 8501990-8 (Version None)
Quarter: 2012Q2

REPORT INFORMATION
  Report Type: 
  Country: None (occurrence: None)
  Receive Date: 20120405
  Receipt Date: 20100729
  Transmission Date: 20120825
  Serious: Yes (Hospitalization)
  Sender: FDA-Public Use
  Company Number: PHHY2010US50568

PATIENT
  Age: 63 Year
  Sex: Female
  Weight: 92.5 kg

DRUGS (9)
  1. NEXIUM [Concomitant]
  2. VITAMIN D [Concomitant]
  3. FLONASE [Concomitant]
  4. VITAMIN E [Concomitant]
  5. DIOVAN [Concomitant]
  6. VITAMIN B12 [Concomitant]
  7. RECLAST [Suspect]
     Indication: OSTEOPOROSIS
     Dosage: 5MG, INTRAVENOUS
     Route: 042
     Dates: start: 20100626
  8. SINGULAIR [Concomitant]
  9. ADVAIR HFA [Concomitant]

REACTIONS (4)
  - MYALGIA [None]
  - ASTHENIA [None]
  - ABDOMINAL PAIN [None]
  - RENAL FAILURE ACUTE [None]
